FAERS Safety Report 5313036-3 (Version None)
Quarter: 2007Q2

REPORT INFORMATION
  Report Type: 
  Country: None (occurrence: None)
  Receive Date: 20070430
  Receipt Date: 20070418
  Transmission Date: 20071010
  Serious: Yes (Other)
  Sender: FDA-Public Use
  Company Number: AR-PFIZER INC-2007015925

PATIENT
  Age: 78 Year
  Sex: Male
  Weight: 70 kg

DRUGS (6)
  1. LYRICA [Suspect]
     Indication: NEUROPATHY
     Route: 048
  2. BACLOFEN [Interacting]
     Route: 048
  3. MAGNESIUM SULFATE [Concomitant]
     Route: 048
     Dates: start: 20040101
  4. VITAMIN CAP [Concomitant]
  5. TRYPTANOL [Concomitant]
     Route: 048
     Dates: start: 19870101
  6. RIVOTRIL [Concomitant]
     Route: 048
     Dates: start: 19870101

REACTIONS (7)
  - ASTHENIA [None]
  - DISTURBANCE IN ATTENTION [None]
  - DIZZINESS [None]
  - DRUG INTERACTION [None]
  - GAIT DISTURBANCE [None]
  - MUSCULAR WEAKNESS [None]
  - SOPOR [None]
